FAERS Safety Report 5284138-5 (Version None)
Quarter: 2007Q1

REPORT INFORMATION
  Report Type: 
  Country: None (occurrence: None)
  Receive Date: 20070328
  Receipt Date: 20070316
  Transmission Date: 20070707
  Serious: Yes (Hospitalization)
  Sender: FDA-Public Use
  Company Number: GXKR2007US02670

PATIENT
  Age: 40 Year
  Sex: Female

DRUGS (1)
  1. CO-TRIMOXAZOLE (NGX)(SULFAMETHOXAZOLE, TRIMETHOPRIM) UNKNOWN [Suspect]
     Indication: DYSURIA

REACTIONS (11)
  - BLOOD LACTATE DEHYDROGENASE INCREASED [None]
  - DRUG HYPERSENSITIVITY [None]
  - HEADACHE [None]
  - HEART RATE INCREASED [None]
  - HYPOTENSION [None]
  - MYALGIA [None]
  - NAUSEA [None]
  - PANCYTOPENIA [None]
  - PYREXIA [None]
  - THROMBOTIC THROMBOCYTOPENIC PURPURA [None]
  - URTICARIA [None]
